FAERS Safety Report 9619249 (Version 2)
Quarter: 2013Q4

REPORT INFORMATION
  Report Type: Spontaneous
  Country: US (occurrence: US)
  Receive Date: 20131014
  Receipt Date: 20131014
  Transmission Date: 20140711
  Serious: No
  Sender: FDA-Public Use
  Company Number: US-009507513-1309USA002637

PATIENT
  Age: 90 Year
  Sex: Male

DRUGS (3)
  1. AZASITE [Suspect]
     Indication: BLEPHARITIS
     Dosage: ONE DROP BOTH EYES DAILY AT NIGHT
     Route: 047
     Dates: start: 201304
  2. AZASITE [Suspect]
     Indication: FLOPPY EYELID SYNDROME
     Dosage: AS PER PRESCRIBING INFORMATION
     Route: 047
     Dates: start: 201210
  3. AZASITE [Suspect]
     Dosage: X 1 GTT ON QD
     Route: 047
     Dates: start: 20110807

REACTIONS (3)
  - Inappropriate schedule of drug administration [Unknown]
  - Off label use [Unknown]
  - No adverse event [Unknown]
